FAERS Safety Report 8561468-2 (Version None)
Quarter: 2012Q3

REPORT INFORMATION
  Report Type: 
  Country: None (occurrence: None)
  Receive Date: 20120802
  Receipt Date: 20120723
  Transmission Date: 20120928
  Serious: Yes (Hospitalization)
  Sender: FDA-Public Use
  Company Number: US-CELGENEUS-163-21880-12062379

PATIENT
  Sex: Male

DRUGS (24)
  1. FERROUS SULFATE TAB [Concomitant]
     Dosage: 325
     Route: 065
  2. NASONEX [Concomitant]
     Route: 065
  3. MAGNESIUM OXIDE [Concomitant]
     Route: 065
  4. TAMSULOSIN HCL [Concomitant]
     Route: 065
  5. REVLIMID [Suspect]
     Indication: MULTIPLE MYELOMA
     Dosage: 15 MILLIGRAM
     Route: 048
     Dates: start: 20120401
  6. LEVEMIR [Concomitant]
     Dosage: 5 UNITS
     Route: 058
  7. COLACE [Concomitant]
     Route: 065
  8. FENOFIBRATE [Concomitant]
     Route: 065
  9. FENTANYL CITRATE [Concomitant]
     Route: 065
  10. ASPIRIN [Concomitant]
     Dosage: 81
     Route: 065
  11. LOVENOX [Concomitant]
     Route: 065
  12. GLYBURIDE [Concomitant]
     Dosage: 5
     Route: 065
  13. AMIODARONE HCL [Concomitant]
     Route: 065
  14. BUMEX [Concomitant]
     Route: 065
  15. COUMADIN [Concomitant]
     Route: 065
  16. VELCADE [Concomitant]
     Indication: MULTIPLE MYELOMA
     Dosage: 1.3 MILLIGRAM/SQ. METER
     Route: 041
  17. ACYCLOVIR [Concomitant]
     Dosage: 800 MILLIGRAM
     Route: 058
  18. CARDIZEM [Concomitant]
     Route: 065
  19. DIGOXIN [Concomitant]
     Route: 065
  20. IRON SULFATETHIAMIN COMPOUND TAB [Concomitant]
     Dosage: 325
     Route: 065
  21. METOPROLOL TARTRATE [Concomitant]
     Route: 065
  22. DEXAMETHASONE [Concomitant]
     Dosage: 20 MILLIGRAM
     Route: 065
     Dates: end: 20120501
  23. SODIUM CHLORIDE [Concomitant]
     Route: 065
  24. HUMALOG [Concomitant]
     Route: 065

REACTIONS (5)
  - HYPERKALAEMIA [None]
  - DEEP VEIN THROMBOSIS [None]
  - OBSTRUCTIVE UROPATHY [None]
  - RENAL FAILURE ACUTE [None]
  - UROSEPSIS [None]
